FAERS Safety Report 10145506 (Version 2)
Quarter: 2014Q2

REPORT INFORMATION
  Report Type: Report from Study
  Country: GR (occurrence: GR)
  Receive Date: 20140501
  Receipt Date: 20140512
  Transmission Date: 20141212
  Serious: Yes (Hospitalization)
  Sender: FDA-Public Use
  Company Number: GR-ROCHE-1391985

PATIENT
  Age: 66 Year
  Sex: Male

DRUGS (7)
  1. RITUXIMAB [Suspect]
     Indication: DIFFUSE LARGE B-CELL LYMPHOMA
     Dosage: AS PER PROTOCOL: DAY OF CYCLE 1 AT A DOSE OF 375 MG/M2
     Route: 042
     Dates: start: 20140403, end: 20140430
  2. RHUPH20/RITUXIMAB [Suspect]
     Indication: DIFFUSE LARGE B-CELL LYMPHOMA
     Dosage: AS PER PROTOCOL: 1400 MG ON DAY 1 OF EACH CYCLE, FOR A FURTHER 7 CYCLES
     Route: 058
  3. CYCLOPHOSPHAMIDE [Suspect]
     Indication: DIFFUSE LARGE B-CELL LYMPHOMA
     Route: 065
     Dates: start: 20140403, end: 20140430
  4. DOXORUBICIN [Suspect]
     Indication: DIFFUSE LARGE B-CELL LYMPHOMA
     Route: 065
     Dates: start: 20140403, end: 20140430
  5. VINCRISTINE [Suspect]
     Indication: DIFFUSE LARGE B-CELL LYMPHOMA
     Route: 065
     Dates: start: 20140403, end: 20140430
  6. PREDNISONE [Suspect]
     Indication: DIFFUSE LARGE B-CELL LYMPHOMA
     Dosage: D1-D5. LAST DOSE PRIOR TO SAE ON 07/APR/2014.
     Route: 065
     Dates: start: 20140403, end: 20140430
  7. CANDESARTAN CILEXETIL [Concomitant]
     Route: 065
     Dates: start: 20120101

REACTIONS (1)
  - Hypernatraemia [Recovering/Resolving]
